FAERS Safety Report 7705836-7 (Version None)
Quarter: 2011Q3

REPORT INFORMATION
  Report Type: 
  Country: None (occurrence: None)
  Receive Date: 20110824
  Receipt Date: 20110815
  Transmission Date: 20111222
  Serious: Yes (Hospitalization)
  Sender: FDA-Public Use
  Company Number: CA-ELI_LILLY_AND_COMPANY-CA201108004614

PATIENT
  Sex: Male

DRUGS (4)
  1. ZYPREXA [Suspect]
     Dosage: 15 MG, QD
  2. ZYPREXA [Suspect]
     Indication: SCHIZOPHRENIA, PARANOID TYPE
     Dosage: 17.5 MG, QD
  3. ASPIRIN [Concomitant]
  4. LEVOTHYROXINE SODIUM [Concomitant]

REACTIONS (13)
  - RECTAL HAEMORRHAGE [None]
  - WEIGHT INCREASED [None]
  - DIABETES MELLITUS [None]
  - HYPONATRAEMIA [None]
  - HYPERGLYCAEMIA [None]
  - VISION BLURRED [None]
  - PROTEINURIA [None]
  - OEDEMA PERIPHERAL [None]
  - HYPOGONADISM [None]
  - SLEEP APNOEA SYNDROME [None]
  - PARAESTHESIA [None]
  - HYPOGLYCAEMIA [None]
  - DYSLIPIDAEMIA [None]
